FAERS Safety Report 7152777-2 (Version None)
Quarter: 2010Q4

REPORT INFORMATION
  Report Type: 
  Country: None (occurrence: None)
  Receive Date: 20101208
  Receipt Date: 20101208
  Transmission Date: 20110411
  Serious: Yes (Hospitalization)
  Sender: FDA-Public Use
  Company Number: None

PATIENT
  Sex: Female
  Weight: 70.23 kg

DRUGS (2)
  1. CISPLATIN [Suspect]
     Dosage: 135 MG
     Dates: end: 20101123
  2. TAXOL [Suspect]
     Dosage: 240 MG
     Dates: end: 20101122

REACTIONS (6)
  - AMNESIA [None]
  - CELLULITIS [None]
  - CULTURE URINE POSITIVE [None]
  - HYPERTENSION [None]
  - PSEUDOMONAS INFECTION [None]
  - RENAL FAILURE [None]
